FAERS Safety Report 7306927-5 (Version None)
Quarter: 2011Q1

REPORT INFORMATION
  Report Type: 
  Country: None (occurrence: None)
  Receive Date: 20110223
  Receipt Date: 20110214
  Transmission Date: 20110831
  Serious: No
  Sender: FDA-Public Use
  Company Number: US-BIOGENIDEC-2010BI043438

PATIENT
  Age: 64 Year
  Sex: Female

DRUGS (2)
  1. TYSABRI [Suspect]
     Indication: MULTIPLE SCLEROSIS
     Route: 042
     Dates: start: 20100604
  2. ARTHROTEC [Concomitant]
     Indication: BACK DISORDER

REACTIONS (5)
  - STRESS FRACTURE [None]
  - SKELETAL INJURY [None]
  - SYNCOPE [None]
  - ARTHROPATHY [None]
  - ARTHRALGIA [None]
